FAERS Safety Report 6290488-6 (Version None)
Quarter: 2009Q3

REPORT INFORMATION
  Report Type: 
  Country: None (occurrence: None)
  Receive Date: 20090730
  Receipt Date: 20090507
  Transmission Date: 20100115
  Serious: No
  Sender: FDA-Public Use
  Company Number: US-BRISTOL-MYERS SQUIBB COMPANY-14614457

PATIENT
  Age: 84 Year
  Sex: Female

DRUGS (4)
  1. COUMADIN [Suspect]
     Indication: COAGULOPATHY
     Dosage: 1 DOSAGE FORM= 5MG 3DAYS A WEEK ALTERNATING WITH 2.5MG 4DAYS A WEEK APPROXIMATELY FIVE YEARS.
  2. SYNTHROID [Concomitant]
  3. LISINOPRIL [Concomitant]
  4. NITROGLYCERIN [Concomitant]

REACTIONS (1)
  - MUSCLE SPASMS [None]
